FAERS Safety Report 11364130 (Version 1)
Quarter: 2015Q3

REPORT INFORMATION
  Report Type: Spontaneous
  Country: JP (occurrence: JP)
  Receive Date: 20150811
  Receipt Date: 20150811
  Transmission Date: 20151125
  Serious: Yes (Other)
  Sender: FDA-Public Use
  Company Number: JP-SA-2015SA114076

PATIENT
  Sex: Male

DRUGS (2)
  1. MYSLEE [Suspect]
     Active Substance: ZOLPIDEM TARTRATE
     Route: 048
     Dates: start: 2015
  2. MYSLEE [Suspect]
     Active Substance: ZOLPIDEM TARTRATE
     Route: 048
     Dates: end: 2015

REACTIONS (3)
  - Delirium [Recovered/Resolved]
  - Sleep paralysis [Unknown]
  - Nightmare [Unknown]

NARRATIVE: CASE EVENT DATE: 2015
